FAERS Safety Report 5734399-0 (Version None)
Quarter: 2008Q2

REPORT INFORMATION
  Report Type: 
  Country: None (occurrence: None)
  Receive Date: 20080508
  Receipt Date: 20080508
  Transmission Date: 20081010
  Serious: No
  Sender: FDA-Public Use
  Company Number: None

PATIENT
  Age: 39 Year
  Sex: Female
  Weight: 72.1219 kg

DRUGS (3)
  1. CREST PRO HEALTH MOUTHWASH NIGHT NORMAL PROCTOR + GAMBLE [Suspect]
     Indication: DENTAL PLAQUE
     Dosage: AS PER LABEL INSTRUCTIONS EACH NIGHT DENTAL
     Route: 004
     Dates: start: 20071113, end: 20071116
  2. CREST PRO HEALTH MOUTHWASH NIGHT NORMAL PROCTOR + GAMBLE [Suspect]
     Indication: GINGIVITIS
     Dosage: AS PER LABEL INSTRUCTIONS EACH NIGHT DENTAL
     Route: 004
     Dates: start: 20071113, end: 20071116
  3. CREST PRO HEALTH MOUTHWASH NIGHT NORMAL PROCTOR + GAMBLE [Suspect]
     Indication: PROPHYLAXIS
     Dosage: AS PER LABEL INSTRUCTIONS EACH NIGHT DENTAL
     Route: 004
     Dates: start: 20071113, end: 20071116

REACTIONS (7)
  - FLUID INTAKE REDUCED [None]
  - GINGIVAL DISORDER [None]
  - GINGIVAL ULCERATION [None]
  - JAW DISORDER [None]
  - ORAL INTAKE REDUCED [None]
  - ORAL PAIN [None]
  - STOMATITIS [None]
